FAERS Safety Report 25812519 (Version 1)
Quarter: 2025Q3

REPORT INFORMATION
  Report Type: Report from Study
  Country: EU (occurrence: EU)
  Receive Date: 20250917
  Receipt Date: 20250917
  Transmission Date: 20251021
  Serious: Yes (Death, Hospitalization, Other)
  Sender: Medicap Laboratories
  Company Number: EU-Medicap-000072

PATIENT

DRUGS (1)
  1. VENLAFAXINE [Suspect]
     Active Substance: VENLAFAXINE HYDROCHLORIDE
     Indication: Product used for unknown indication
     Route: 065

REACTIONS (7)
  - Cardiogenic shock [Fatal]
  - Arrhythmic storm [Fatal]
  - Hypoglycaemia [Fatal]
  - Toxicity to various agents [Fatal]
  - Poisoning deliberate [Fatal]
  - Completed suicide [Fatal]
  - Intentional overdose [Fatal]
